FAERS Safety Report 8933992 (Version 2)
Quarter: 2012Q4

REPORT INFORMATION
  Report Type: 
  Country: JP (occurrence: JP)
  Receive Date: 20121129
  Receipt Date: 20121207
  Transmission Date: 20130627
  Serious: Yes (Life-Threatening, Other)
  Sender: FDA-Public Use
  Company Number: JP-ROCHE-1158593

PATIENT
  Age: 65 Year
  Sex: Male
  Weight: 49 kg

DRUGS (7)
  1. AVASTIN [Suspect]
     Indication: RECTAL CANCER
     Route: 041
     Dates: start: 20110721, end: 20110721
  2. XELODA [Suspect]
     Indication: RECTAL CANCER
     Dosage: 2 weeks administration followed by 1 week rest
     Route: 048
     Dates: start: 20110721, end: 20110802
  3. ELPLAT [Concomitant]
     Indication: RECTAL CANCER
     Dosage: Dosage is uncertain.
     Route: 041
     Dates: start: 20110721, end: 20110721
  4. CEFTRIAXONE SODIUM [Concomitant]
     Indication: PYREXIA
     Route: 041
     Dates: start: 201107, end: 20110726
  5. CEFTRIAXONE SODIUM [Concomitant]
     Indication: PYREXIA
     Route: 041
     Dates: start: 20110727, end: 201107
  6. CLINDAMYCIN PHOSPHATE [Concomitant]
     Indication: PYREXIA
     Route: 041
     Dates: start: 201107, end: 20120720
  7. CLINDAMYCIN PHOSPHATE [Concomitant]
     Indication: PYREXIA
     Route: 041
     Dates: start: 20110727, end: 201107

REACTIONS (11)
  - Neutrophil count decreased [Recovered/Resolved]
  - Platelet count decreased [Recovered/Resolved]
  - Anaemia [Not Recovered/Not Resolved]
  - Inflammation [Unknown]
  - Stomatitis [Recovering/Resolving]
  - Oropharyngeal pain [Unknown]
  - Hypophagia [Unknown]
  - Hiccups [Unknown]
  - Diarrhoea [Recovering/Resolving]
  - Gait disturbance [Unknown]
  - Ileus [Recovering/Resolving]
